FAERS Safety Report 5239394-6 (Version None)
Quarter: 2007Q1

REPORT INFORMATION
  Report Type: 
  Country: None (occurrence: None)
  Receive Date: 20070214
  Receipt Date: 20070214
  Transmission Date: 20070707
  Serious: Yes (Hospitalization, Disabling)
  Sender: FDA-Public Use
  Company Number: None

PATIENT
  Sex: Female
  Weight: 94 kg

DRUGS (3)
  1. ALEFACEPT 15MG BIOGEN IDEC [Suspect]
     Indication: PSORIASIS
     Dosage: 30MG QWK X 14 IM
     Route: 030
     Dates: start: 20050803, end: 20051102
  2. ALEFACEPT 15MG BIOGEN IDEC [Suspect]
  3. ALEFACEPT 15MG BIOGEN IDEC [Suspect]
     Indication: PSORIASIS
     Dosage: 15MG QW X1 IM
     Route: 030
     Dates: start: 20050727

REACTIONS (2)
  - HAND AMPUTATION [None]
  - PREMATURE LABOUR [None]
